FAERS Safety Report 9698350 (Version 1)
Quarter: 2013Q4

REPORT INFORMATION
  Report Type: Spontaneous
  Country: US (occurrence: US)
  Receive Date: 20131120
  Receipt Date: 20131120
  Transmission Date: 20140711
  Serious: Yes (Other)
  Sender: FDA-Public Use
  Company Number: US-MALLINCKRODT-T201304450

PATIENT
  Sex: Female

DRUGS (2)
  1. GABLOFEN [Suspect]
     Indication: MUSCLE SPASTICITY
     Dosage: 50 MCG, 2000MCG/ML
     Route: 037
  2. GABLOFEN [Suspect]
     Dosage: 50 MCG, 1000 MCG/ML
     Route: 037
     Dates: start: 2013

REACTIONS (3)
  - CSF pressure decreased [Unknown]
  - Fall [Unknown]
  - Migraine [Unknown]
